FAERS Safety Report 25399443 (Version 1)
Quarter: 2025Q2

REPORT INFORMATION
  Report Type: Spontaneous
  Country: US (occurrence: US)
  Receive Date: 20250605
  Receipt Date: 20250605
  Transmission Date: 20250717
  Serious: No
  Sender: ALEXION PHARMACEUTICALS
  Company Number: US-AstraZeneca-CH-00881671AP

PATIENT
  Age: 77 Year

DRUGS (1)
  1. FASENRA [Suspect]
     Active Substance: BENRALIZUMAB
     Indication: Product used for unknown indication
     Dosage: 30 MILLIGRAM PER MILLILITRE, Q8W
     Route: 065

REACTIONS (7)
  - Incorrect dose administered by device [Unknown]
  - Device defective [Unknown]
  - Injection site pain [Unknown]
  - Malaise [Unknown]
  - Seasonal allergy [Unknown]
  - Wrong technique in product usage process [Unknown]
  - Device leakage [Unknown]
